FAERS Safety Report 23645125 (Version 2)
Quarter: 2024Q1

REPORT INFORMATION
  Report Type: Spontaneous
  Country: US (occurrence: US)
  Receive Date: 20240318
  Receipt Date: 20240322
  Transmission Date: 20240410
  Serious: No
  Sender: FDA-Public Use
  Company Number: US-FreseniusKabi-FK202404228

PATIENT
  Sex: Female
  Weight: 109.8 kg

DRUGS (1)
  1. SENSORCAINE MPF [Suspect]
     Active Substance: BUPIVACAINE HYDROCHLORIDE
     Indication: Knee arthroplasty
     Dosage: FREQUENCY: ONE TIME?ROUTE OF ADMIN: INTRATHECAL?FORM OF ADMIN: INJECTION
     Dates: start: 20240312

REACTIONS (2)
  - Therapeutic product effect delayed [Unknown]
  - Off label use [Unknown]

NARRATIVE: CASE EVENT DATE: 20240312
